FAERS Safety Report 5308833-4 (Version None)
Quarter: 2007Q2

REPORT INFORMATION
  Report Type: 
  Country: None (occurrence: None)
  Receive Date: 20070426
  Receipt Date: 20070417
  Transmission Date: 20071010
  Serious: Yes (Other)
  Sender: FDA-Public Use
  Company Number: BR-PFIZER INC-2007031387

PATIENT
  Sex: Male

DRUGS (3)
  1. TERRAMICINA [Suspect]
     Indication: EYE IRRITATION
     Route: 061
  2. CAPTOPRIL [Concomitant]
     Route: 048
  3. GLYBURIDE [Concomitant]
     Route: 048

REACTIONS (1)
  - EYELID DISORDER [None]
